FAERS Safety Report 10443937 (Version 1)
Quarter: 2014Q3

REPORT INFORMATION
  Report Type: Spontaneous
  Country: US (occurrence: US)
  Receive Date: 20140910
  Receipt Date: 20140910
  Transmission Date: 20150326
  Serious: No
  Sender: FDA-Public Use
  Company Number: US-TARO-2013P1022332

PATIENT
  Age: 86 Year
  Sex: Male

DRUGS (1)
  1. WARFARIN SODIUM TABLETS USP 5MG [Suspect]
     Active Substance: WARFARIN SODIUM
     Dates: start: 2011, end: 20131225

REACTIONS (2)
  - Gingival bleeding [Unknown]
  - Tooth fracture [Not Recovered/Not Resolved]
